FAERS Safety Report 15460788 (Version 1)
Quarter: 2018Q4

REPORT INFORMATION
  Report Type: Report from Study
  Country: US (occurrence: US)
  Receive Date: 20181003
  Receipt Date: 20181003
  Transmission Date: 20190204
  Serious: Yes (Other)
  Sender: FDA-Public Use
  Company Number: US-MYLANLABS-2018M1070740

PATIENT
  Age: 2 Month
  Sex: Male

DRUGS (1)
  1. ESMOLOL [Suspect]
     Active Substance: ESMOLOL HYDROCHLORIDE
     Indication: ARRHYTHMIA SUPRAVENTRICULAR
     Route: 065

REACTIONS (1)
  - Treatment failure [Unknown]
